FAERS Safety Report 8574331-8 (Version None)
Quarter: 2012Q3

REPORT INFORMATION
  Report Type: 
  Country: None (occurrence: None)
  Receive Date: 20120806
  Receipt Date: 20120802
  Transmission Date: 20120928
  Serious: Yes (Death)
  Sender: FDA-Public Use
  Company Number: AU-B.I. PHARMACEUTICALS,INC./RIDGEFIELD-2012-AU-01259AU

PATIENT
  Sex: Female

DRUGS (13)
  1. PRADAXA [Suspect]
     Indication: ATRIAL FIBRILLATION
  2. DIGOXIN [Concomitant]
     Indication: ATRIAL FIBRILLATION
  3. FRUSEMDIE [Concomitant]
     Indication: CARDIAC FAILURE CONGESTIVE
  4. METHYLDOPA [Concomitant]
     Indication: HYPERTENSION
  5. SERETIDE [Concomitant]
  6. METFORMIN HYDROCHLORIDE [Concomitant]
     Indication: TYPE 2 DIABETES MELLITUS
  7. METOPROLOL TARTRATE [Concomitant]
     Indication: ATRIAL FIBRILLATION
  8. EZETIMIBE [Concomitant]
     Indication: BLOOD CHOLESTEROL INCREASED
  9. VALPROATE SODIUM [Concomitant]
     Indication: EPILEPSY
  10. ISOSORBIDE DINITRATE [Concomitant]
     Indication: HYPERTENSION
  11. PRADAXA [Suspect]
     Indication: CEREBROVASCULAR ACCIDENT PROPHYLAXIS
     Dates: start: 20110713
  12. FELODIPINE [Concomitant]
     Indication: HYPERTENSION
  13. OLMESARTAN MEDOXOMIL [Concomitant]
     Indication: HYPERTENSION

REACTIONS (1)
  - DEATH [None]
